FAERS Safety Report 9154857 (Version 3)
Quarter: 2013Q4

REPORT INFORMATION
  Report Type: Report from Study
  Country: DE (occurrence: DE)
  Receive Date: 20130311
  Receipt Date: 20131110
  Transmission Date: 20140711
  Serious: Yes (Death)
  Sender: FDA-Public Use
  Company Number: PHHO2013DE003613

PATIENT
  Sex: 0

DRUGS (5)
  1. EVEROLIMUS [Suspect]
     Indication: BREAST CANCER METASTATIC
     Dosage: 10 MG, QD
     Route: 048
     Dates: start: 20121010
  2. EXEMESTANE [Suspect]
     Indication: BREAST CANCER METASTATIC
     Dosage: 25 MG, QD
     Route: 048
     Dates: start: 201204
  3. DEXAMETHASONE [Suspect]
     Dosage: 4 MG, DAILY
     Dates: start: 20130121, end: 201302
  4. DEXAMETHASONE [Suspect]
     Dosage: 2 MG, DAILY
     Dates: start: 201302, end: 20130219
  5. DEXAMETHASONE [Suspect]
     Dosage: 2 MG, QOD
     Dates: start: 20130220, end: 201303

REACTIONS (2)
  - Pneumonia [Fatal]
  - Multi-organ failure [Fatal]
